FAERS Safety Report 17191071 (Version 1)
Quarter: 2019Q4

REPORT INFORMATION
  Report Type: Spontaneous
  Country: MY (occurrence: MY)
  Receive Date: 20191223
  Receipt Date: 20191223
  Transmission Date: 20200122
  Serious: Yes (Other)
  Sender: FDA-Public Use
  Company Number: MY-TEVA-2019-MY-1151416

PATIENT
  Age: 10 Year
  Sex: Female

DRUGS (1)
  1. METOCLOPRAMIDE ACTAVIS TABLET 10MG [Suspect]
     Active Substance: METOCLOPRAMIDE HYDROCHLORIDE
     Indication: VOMITING
     Route: 048

REACTIONS (2)
  - Dyskinesia [Recovered/Resolved]
  - Gaze palsy [Recovered/Resolved]
